FAERS Safety Report 6782768-2 (Version None)
Quarter: 2010Q2

REPORT INFORMATION
  Report Type: 
  Country: None (occurrence: None)
  Receive Date: 20100621
  Receipt Date: 20100610
  Transmission Date: 20101027
  Serious: Yes (Other)
  Sender: FDA-Public Use
  Company Number: JP-MERCK-1006USA02201

PATIENT
  Age: 36 Year
  Sex: Female

DRUGS (4)
  1. PEPCID [Suspect]
     Route: 048
  2. FUTHAN [Concomitant]
     Route: 065
  3. MIRACLID [Concomitant]
     Route: 065
  4. MEROPEN [Concomitant]
     Route: 065

REACTIONS (4)
  - CHOLANGITIS [None]
  - LIVER ABSCESS [None]
  - LUNG DISORDER [None]
  - PORTAL VEIN THROMBOSIS [None]
